FAERS Safety Report 24732659 (Version 1)
Quarter: 2024Q4

REPORT INFORMATION
  Report Type: Spontaneous
  Country: SK (occurrence: SK)
  Receive Date: 20241213
  Receipt Date: 20241213
  Transmission Date: 20250115
  Serious: Yes (Hospitalization, Other)
  Sender: TEVA
  Company Number: SK-SANDOZ-SDZ2024SK094292

PATIENT
  Age: 67 Year
  Sex: Female

DRUGS (7)
  1. LETROZOLE [Suspect]
     Active Substance: LETROZOLE
     Indication: Hormone therapy
     Dosage: 2.5 MG, QD
     Route: 065
     Dates: start: 201906
  2. PHACEBONATE [Concomitant]
     Indication: Product used for unknown indication
     Route: 065
  3. RIBOCICLIB [Suspect]
     Active Substance: RIBOCICLIB
     Indication: Product used for unknown indication
     Dosage: 600 MG 21 DAYS ON, 7 DAYS OFF, NC 29TH. DAY
     Route: 065
     Dates: start: 202004
  4. RIBOCICLIB [Suspect]
     Active Substance: RIBOCICLIB
     Indication: Product used for unknown indication
     Route: 065
  5. RIBOCICLIB [Suspect]
     Active Substance: RIBOCICLIB
     Indication: Product used for unknown indication
     Dosage: 200 MG (21/7, NC29. DAY)
     Route: 065
  6. CALTRATE [Concomitant]
     Active Substance: CALCIUM CARBONATE
     Indication: Product used for unknown indication
     Dosage: 1 DF, QD (600/400MG )
     Route: 065
  7. METOCLOPRAMIDE HYDROCHLORIDE [Suspect]
     Active Substance: METOCLOPRAMIDE HYDROCHLORIDE
     Indication: Product used for unknown indication
     Dosage: UNK
     Route: 065

REACTIONS (15)
  - Lumbar vertebral fracture [Unknown]
  - Malaise [Unknown]
  - Dyspnoea [Unknown]
  - Weight decreased [Unknown]
  - Fall [Unknown]
  - Failure to thrive [Unknown]
  - Neutropenia [Unknown]
  - Renal cell carcinoma [Unknown]
  - Pleural effusion [Unknown]
  - Asthenia [Unknown]
  - Bone pain [Unknown]
  - Disease progression [Unknown]
  - Dyspepsia [Unknown]
  - Carbohydrate antigen 15-3 increased [Unknown]
  - Somnolence [Unknown]

NARRATIVE: CASE EVENT DATE: 20200101
